FAERS Safety Report 11554321 (Version 4)
Quarter: 2015Q4

REPORT INFORMATION
  Report Type: Spontaneous
  Country: IT (occurrence: IT)
  Receive Date: 20150925
  Receipt Date: 20151006
  Transmission Date: 20160304
  Serious: Yes (Death, Hospitalization, Other)
  Sender: FDA-Public Use
  Company Number: PHHY2015IT113161

PATIENT
  Age: 76 Year
  Sex: Male

DRUGS (2)
  1. IRINOTECAN [Suspect]
     Active Substance: IRINOTECAN
     Indication: COLON CANCER METASTATIC
     Dosage: 180 UG/M2, UNK
     Route: 042
     Dates: start: 20130910
  2. ERBITUX [Suspect]
     Active Substance: CETUXIMAB
     Indication: COLON CANCER METASTATIC
     Dosage: 400 MG, ONCE/SINGLE
     Route: 065
     Dates: start: 20130910

REACTIONS (3)
  - Febrile neutropenia [Fatal]
  - Melaena [Fatal]
  - Anaemia [Fatal]

NARRATIVE: CASE EVENT DATE: 20150916
